FAERS Safety Report 5343594-4 (Version None)
Quarter: 2007Q2

REPORT INFORMATION
  Report Type: 
  Country: None (occurrence: None)
  Receive Date: 20070531
  Receipt Date: 20070522
  Transmission Date: 20071010
  Serious: Yes (Other)
  Sender: FDA-Public Use
  Company Number: 16588

PATIENT
  Age: 7 Year
  Sex: Female

DRUGS (7)
  1. CYTARABINE [Suspect]
     Indication: B PRECURSOR TYPE ACUTE LEUKAEMIA
     Dosage: 70 MG PER_CYCLE IT
     Route: 037
  2. CYTARABINE [Suspect]
     Indication: B PRECURSOR TYPE ACUTE LEUKAEMIA
  3. PEG-ASPARAGINASE [Suspect]
     Indication: B PRECURSOR TYPE ACUTE LEUKAEMIA
     Dosage: 2500 IU PER_CYCLE IM
     Route: 030
  4. PEG-ASPARAGINASE [Suspect]
     Indication: B PRECURSOR TYPE ACUTE LEUKAEMIA
  5. DEXAMETHASONE 0.5MG TAB [Concomitant]
  6. VINCRISTINE [Concomitant]
  7. METHOTREXATE [Concomitant]

REACTIONS (11)
  - APHASIA [None]
  - BRAIN OEDEMA [None]
  - CEREBROVASCULAR SPASM [None]
  - COAGULOPATHY [None]
  - ENCEPHALOPATHY [None]
  - HALLUCINATION, VISUAL [None]
  - HEMIPARESIS [None]
  - INCONTINENCE [None]
  - REVERSIBLE POSTERIOR LEUKOENCEPHALOPATHY SYNDROME [None]
  - SCREAMING [None]
  - VASCULITIS [None]
